FAERS Safety Report 19885503 (Version 2)
Quarter: 2021Q4

REPORT INFORMATION
  Report Type: Report from Study
  Country: BR (occurrence: BR)
  Receive Date: 20210927
  Receipt Date: 20211214
  Transmission Date: 20220304
  Serious: Yes (Other)
  Sender: FDA-Public Use
  Company Number: BR-GLAXOSMITHKLINE-BR2021GSK201897

PATIENT
  Sex: Female

DRUGS (1)
  1. NIRAPARIB [Suspect]
     Active Substance: NIRAPARIB
     Indication: Ovarian cancer
     Dosage: UNK
     Route: 048
     Dates: end: 20210819

REACTIONS (1)
  - Malignant neoplasm progression [Unknown]
